FAERS Safety Report 23798758 (Version 4)
Quarter: 2024Q2

REPORT INFORMATION
  Report Type: Spontaneous
  Country: US (occurrence: US)
  Receive Date: 20240430
  Receipt Date: 20240603
  Transmission Date: 20240716
  Serious: Yes (Other)
  Sender: FDA-Public Use
  Company Number: US-PFIZER INC-202400095916

PATIENT
  Age: 67 Year
  Sex: Female
  Weight: 83.91 kg

DRUGS (5)
  1. GENOTROPIN [Suspect]
     Active Substance: SOMATROPIN
     Indication: Brain injury
     Dosage: 0.6 MG, DAILY
     Route: 058
     Dates: start: 202209, end: 202403
  2. GENOTROPIN [Suspect]
     Active Substance: SOMATROPIN
     Indication: Growth hormone deficiency
     Dosage: 0.2MG TITRATING UP TO 0.6MG
     Route: 058
     Dates: start: 202206
  3. GENOTROPIN [Suspect]
     Active Substance: SOMATROPIN
     Dosage: 0.6 MG, 1X/DAY
     Route: 058
     Dates: start: 202209
  4. GENOTROPIN [Suspect]
     Active Substance: SOMATROPIN
     Dosage: 0.6 MG, 1X/DAY
     Route: 058
  5. GENOTROPIN [Suspect]
     Active Substance: SOMATROPIN
     Dosage: INJECTS 0.2 MG Q (EVERY) NIGHT FOR 28 DAYS
     Route: 058

REACTIONS (10)
  - Drug dose omission by device [Recovering/Resolving]
  - Device leakage [Recovering/Resolving]
  - Blood glucose decreased [Recovered/Resolved]
  - Insomnia [Unknown]
  - Dizziness [Unknown]
  - Tremor [Unknown]
  - Device use issue [Not Recovered/Not Resolved]
  - Hypotension [Unknown]
  - Fall [Unknown]
  - Device use error [Unknown]

NARRATIVE: CASE EVENT DATE: 20240301
